FAERS Safety Report 4751675-9 (Version None)
Quarter: 2005Q3

REPORT INFORMATION
  Report Type: 
  Country: None (occurrence: None)
  Receive Date: 20050824
  Receipt Date: 20050822
  Transmission Date: 20060218
  Serious: Yes (Death)
  Sender: FDA-Public Use
  Company Number: PHEH2005US09308

PATIENT
  Age: 54 Year
  Sex: Male

DRUGS (2)
  1. ZOLOFT [Concomitant]
  2. CLOZARIL [Suspect]

REACTIONS (2)
  - DEATH [None]
  - HEAT EXHAUSTION [None]
